FAERS Safety Report 18463909 (Version 2)
Quarter: 2020Q4

REPORT INFORMATION
  Report Type: Spontaneous
  Country: US (occurrence: US)
  Receive Date: 20201104
  Receipt Date: 20201230
  Transmission Date: 20210114
  Serious: No
  Sender: FDA-Public Use
  Company Number: US-VERTEX PHARMACEUTICALS-2020-021398

PATIENT
  Sex: Female
  Weight: 45 kg

DRUGS (12)
  1. CHILDRENS TYLENOL [Concomitant]
     Active Substance: ACETAMINOPHEN
  2. ALBUTEROL SULFATE. [Concomitant]
     Active Substance: ALBUTEROL SULFATE
  3. AMITIZA [Concomitant]
     Active Substance: LUBIPROSTONE
     Dosage: 8 MICROGRAM
  4. CHILDRENS MOTRIN [Concomitant]
     Active Substance: IBUPROFEN
  5. SALINE NASAL MIST [Concomitant]
  6. TRIKAFTA [Suspect]
     Active Substance: ELEXACAFTOR\IVACAFTOR\TEZACAFTOR
     Indication: CYSTIC FIBROSIS
     Dosage: 2 ORANGE TABS100 MG ELEXACAFTOR/ 50 MG TEZACAFTOR/ 75 MG IVACAFTOR AM; 1 BLUE TAB150MG IVACAFTOR PM
     Route: 048
     Dates: start: 201912, end: 202003
  7. HYPERSAL [Concomitant]
     Active Substance: SODIUM CHLORIDE
  8. VITAMIN A [RETINOL] [Concomitant]
     Active Substance: RETINOL
     Dosage: 10000 UNIT
  9. PULMOZYME [Concomitant]
     Active Substance: DORNASE ALFA
     Dosage: 1 MILLIGRAM PER MILLILITRE
  10. GENTAMYCIN SULFATE [Concomitant]
     Active Substance: GENTAMICIN SULFATE
     Dosage: 590 MICROGRAM PER MILLIGRAM
  11. VITAMIN D3 [Concomitant]
     Active Substance: CHOLECALCIFEROL
     Dosage: 10000
  12. SODIUM CHLORIDE. [Concomitant]
     Active Substance: SODIUM CHLORIDE

REACTIONS (2)
  - Appetite disorder [Not Recovered/Not Resolved]
  - Depression [Recovered/Resolved]
